FAERS Safety Report 8581020 (Version 2)
Quarter: 2013Q2

REPORT INFORMATION
  Report Type: Spontaneous
  Country: US (occurrence: US)
  Receive Date: 20120525
  Receipt Date: 20130430
  Transmission Date: 20140414
  Serious: No
  Sender: FDA-Public Use
  Company Number: US-ELI_LILLY_AND_COMPANY-US201103004095

PATIENT
  Age: 85 Year
  Sex: Female

DRUGS (13)
  1. FORTEO [Suspect]
     Indication: OSTEOPOROSIS
     Dosage: 20 UG, QD
     Route: 065
     Dates: end: 201102
  2. FORTEO [Suspect]
     Dosage: 20 UG, QD
     Route: 065
     Dates: start: 201104
  3. FORTEO [Suspect]
     Dosage: 20 UG, QD
     Route: 065
     Dates: start: 201110
  4. FORTEO [Suspect]
     Dosage: 20 UG, QD
     Route: 065
  5. FORTEO [Suspect]
     Dosage: 20 UG, QD
  6. FORTEO [Suspect]
     Dosage: 20 UG, QD
  7. CALCIUM [Concomitant]
  8. LISINOPRIL [Concomitant]
  9. AMLODIPINE [Concomitant]
  10. VITAMIN D NOS [Concomitant]
  11. MAGNESIUM [Concomitant]
  12. BABY ASPIRIN [Concomitant]
  13. IRON [Concomitant]
     Dosage: 65 MG, UNK

REACTIONS (24)
  - Blood pressure increased [Recovered/Resolved]
  - Heart rate increased [Unknown]
  - Visual acuity reduced [Unknown]
  - Vision blurred [Unknown]
  - Movement disorder [Unknown]
  - Myalgia [Unknown]
  - Memory impairment [Not Recovered/Not Resolved]
  - Bone pain [Unknown]
  - Sleep disorder due to a general medical condition [Recovered/Resolved]
  - Exostosis [Unknown]
  - Gait disturbance [Unknown]
  - Bone disorder [Unknown]
  - Nail growth abnormal [Unknown]
  - Nail disorder [Unknown]
  - Restless legs syndrome [Unknown]
  - Pruritus [Not Recovered/Not Resolved]
  - Insomnia [Not Recovered/Not Resolved]
  - Asthenia [Recovering/Resolving]
  - Arthralgia [Unknown]
  - Blood calcium increased [Unknown]
  - Arthralgia [Unknown]
  - Back pain [Unknown]
  - Pain in extremity [Unknown]
  - Bone pain [Unknown]
